FAERS Safety Report 9466766 (Version 1)
Quarter: 2013Q3

REPORT INFORMATION
  Report Type: Spontaneous
  Country: MX (occurrence: MX)
  Receive Date: 20130820
  Receipt Date: 20130820
  Transmission Date: 20140515
  Serious: Yes (Other)
  Sender: FDA-Public Use
  Company Number: PHHY2013MX089672

PATIENT
  Age: 81 Year
  Sex: Male

DRUGS (3)
  1. TEGRETOL [Suspect]
     Indication: PARAESTHESIA
     Dosage: 200 MG, DAILY
     Route: 048
     Dates: start: 20120222, end: 201302
  2. TEGRETOL [Suspect]
     Indication: OFF LABEL USE
     Dosage: 200 MG, DAILY (0.5 TABLET IN THE MORNIONG AND 0.5 TABLET AT NIGHT)
     Route: 048
     Dates: start: 201308
  3. VITAMIN B [Concomitant]
     Dosage: 1 UKN, Q72H

REACTIONS (9)
  - Leukaemia [Not Recovered/Not Resolved]
  - Anaemia [Not Recovered/Not Resolved]
  - Yellow skin [Not Recovered/Not Resolved]
  - Pain [Recovered/Resolved]
  - Eye pain [Recovered/Resolved]
  - Muscle spasms [Recovered/Resolved]
  - Headache [Recovered/Resolved]
  - Anxiety [Recovered/Resolved]
  - Depression [Recovered/Resolved]
